FAERS Safety Report 10999472 (Version 2)
Quarter: 2016Q2

REPORT INFORMATION
  Report Type: Spontaneous
  Country: US (occurrence: US)
  Receive Date: 20150408
  Receipt Date: 20160412
  Transmission Date: 20160815
  Serious: No
  Sender: FDA-Public Use
  Company Number: US-SA-2014SA069431

PATIENT
  Age: 60 Year
  Sex: Female

DRUGS (2)
  1. ALLEGRA [Suspect]
     Active Substance: FEXOFENADINE HYDROCHLORIDE
     Indication: MULTIPLE ALLERGIES
     Route: 048
     Dates: start: 201507
  2. ZYRTEC [Concomitant]
     Active Substance: CETIRIZINE HYDROCHLORIDE

REACTIONS (9)
  - Neck pain [Unknown]
  - Somnolence [Unknown]
  - Dry mouth [Unknown]
  - Heart rate increased [Unknown]
  - Drug ineffective [Unknown]
  - Weight decreased [Unknown]
  - Musculoskeletal pain [Unknown]
  - Nervousness [Unknown]
  - Wrong technique in product usage process [Unknown]
